FAERS Safety Report 5469722-8 (Version None)
Quarter: 2007Q3

REPORT INFORMATION
  Report Type: 
  Country: None (occurrence: None)
  Receive Date: 20070926
  Receipt Date: 20070926
  Transmission Date: 20080115
  Serious: Yes (Other)
  Sender: FDA-Public Use
  Company Number: None

PATIENT
  Age: 67 Year
  Sex: Female
  Weight: 87.9978 kg

DRUGS (6)
  1. LAPATINIB [Suspect]
     Indication: BREAST CANCER
     Dosage: 5 PILLS DAILY (1250 MG)
     Dates: start: 20070906, end: 20070919
  2. OPIUM TINTURE [Suspect]
     Indication: DIARRHOEA
     Dosage: OPIUM TINTURE 1 ML P.O.
     Route: 048
     Dates: start: 20070919, end: 20070920
  3. ESOMEPRAZOLE MAGNESIUM [Concomitant]
  4. CALCIUM D [Concomitant]
  5. ASPIRIN [Concomitant]
  6. ATIVAN [Concomitant]

REACTIONS (6)
  - DEHYDRATION [None]
  - DIARRHOEA [None]
  - DRUG TOXICITY [None]
  - LOSS OF CONSCIOUSNESS [None]
  - SYNCOPE [None]
  - VOMITING [None]
